FAERS Safety Report 25028981 (Version 5)
Quarter: 2025Q1

REPORT INFORMATION
  Report Type: Report from Study
  Country: CA (occurrence: CA)
  Receive Date: 20250302
  Receipt Date: 20250326
  Transmission Date: 20250409
  Serious: Yes (Other)
  Sender: JOHNSON AND JOHNSON
  Company Number: CA-JNJFOC-20250271134

PATIENT
  Age: 78 Year
  Sex: Male

DRUGS (13)
  1. REMICADE [Suspect]
     Active Substance: INFLIXIMAB
     Indication: Crohn^s disease
     Route: 041
     Dates: start: 20190312
  2. REMICADE [Suspect]
     Active Substance: INFLIXIMAB
     Route: 041
     Dates: start: 20190312
  3. DOLORAL-5 [Concomitant]
  4. Acide folique 1mg une fois par jour sauf la journ?e du methotrexate [Concomitant]
  5. Pregabalin 50mg le matin et 100mg au coucher [Concomitant]
  6. Rosuvastatin 20mg une fois par jour [Concomitant]
  7. Quetiapine 25mg prendre 2 comp au coucher [Concomitant]
  8. Methotrexate 10mg 1 et 1/2 comprim? une fois par semaine [Concomitant]
  9. PANTOPRAZOLE [Concomitant]
     Active Substance: PANTOPRAZOLE
  10. SULFASALAZINE [Concomitant]
     Active Substance: SULFASALAZINE
  11. CYANOCOBALAMIN [Concomitant]
     Active Substance: CYANOCOBALAMIN
  12. Synthroid 0.2mg une fois par jour [Concomitant]
  13. Xarelto 20mg une fois par jour [Concomitant]

REACTIONS (3)
  - Haematological malignancy [Not Recovered/Not Resolved]
  - Inappropriate schedule of product administration [Unknown]
  - Off label use [Unknown]

NARRATIVE: CASE EVENT DATE: 20250224
